FAERS Safety Report 7972202 (Version 3)
Quarter: 2012Q4

REPORT INFORMATION
  Report Type: Report from Study
  Country: DE (occurrence: DE)
  Receive Date: 20110602
  Receipt Date: 20120828
  Transmission Date: 20130627
  Serious: Yes (Hospitalization)
  Sender: FDA-Public Use
  Company Number: DE-BAXTER-2011BH017483

PATIENT
  Age: 56 Year
  Sex: Male
  Weight: 145 kg

DRUGS (1)
  1. TISSUCOL DUO S 2 ML IMMUNO [Suspect]
     Indication: WOUND CLOSURE
     Dates: start: 20110112

REACTIONS (1)
  - Wound infection [Unknown]
